FAERS Safety Report 8140904-X (Version None)
Quarter: 2012Q1

REPORT INFORMATION
  Report Type: 
  Country: None (occurrence: None)
  Receive Date: 20120214
  Receipt Date: 20120214
  Transmission Date: 20120608
  Serious: Yes (Hospitalization)
  Sender: FDA-Public Use
  Company Number: None

PATIENT
  Age: 64 Year
  Sex: Male
  Weight: 89.7 kg

DRUGS (4)
  1. LISINOPRIL [Suspect]
     Indication: HYPERTENSION
     Dosage: MG PO
     Route: 048
     Dates: start: 20100126, end: 20120127
  2. LISINOPRIL [Suspect]
     Indication: CARDIAC FAILURE CONGESTIVE
     Dosage: MG PO
     Route: 048
     Dates: start: 20100126, end: 20120127
  3. SPIRONOLACTONE [Suspect]
     Indication: DIABETES MELLITUS
     Dosage: MG PO
     Route: 048
     Dates: start: 20100126, end: 20120127
  4. SPIRONOLACTONE [Suspect]
     Indication: HYPERTENSION
     Dosage: MG PO
     Route: 048
     Dates: start: 20100126, end: 20120127

REACTIONS (6)
  - DEHYDRATION [None]
  - HYPERKALAEMIA [None]
  - HYPOPHAGIA [None]
  - VOMITING [None]
  - RENAL FAILURE ACUTE [None]
  - HYPOTENSION [None]
